FAERS Safety Report 6217719-2 (Version None)
Quarter: 2009Q2

REPORT INFORMATION
  Report Type: 
  Country: None (occurrence: None)
  Receive Date: 20090604
  Receipt Date: 20090604
  Transmission Date: 20091009
  Serious: No
  Sender: FDA-Public Use
  Company Number: None

PATIENT
  Age: 56 Year
  Sex: Female
  Weight: 74.8435 kg

DRUGS (1)
  1. PLAVIX [Suspect]
     Dosage: 1/DAY
     Dates: start: 20071219, end: 20090330

REACTIONS (1)
  - PUSTULAR PSORIASIS [None]
